FAERS Safety Report 4314553-5 (Version None)
Quarter: 2004Q1

REPORT INFORMATION
  Report Type: 
  Country: None (occurrence: None)
  Receive Date: 20040309
  Receipt Date: 20040304
  Transmission Date: 20041129
  Serious: Yes (Disabling)
  Sender: FDA-Public Use
  Company Number: WAES 0403USA00389

PATIENT
  Age: 75 Year
  Sex: Male

DRUGS (5)
  1. [THERAPY UNSPECIFIED] [Concomitant]
  2. ASPIRIN [Concomitant]
  3. ZETIA [Suspect]
     Indication: BLOOD CHOLESTEROL INCREASED
     Route: 048
     Dates: start: 20040303
  4. PRAVACHOL [Concomitant]
  5. ACCUPRIL [Concomitant]

REACTIONS (1)
  - DYSPEPSIA [None]
